FAERS Safety Report 10484331 (Version 1)
Quarter: 2014Q3

REPORT INFORMATION
  Report Type: Spontaneous
  Country: US (occurrence: None)
  Receive Date: 20140926
  Receipt Date: 20140926
  Transmission Date: 20150326
  Serious: Yes (Hospitalization, Other)
  Sender: FDA-Public Use
  Company Number: 2009S1007622

PATIENT
  Age: 74 Year
  Sex: Female

DRUGS (6)
  1. CELEBREX [Concomitant]
     Active Substance: CELECOXIB
  2. PHOSPHO-SODA [Suspect]
     Active Substance: SODIUM PHOSPHATE, DIBASIC\SODIUM PHOSPHATE, MONOBASIC
     Indication: COLONOSCOPY
     Route: 048
     Dates: start: 20040224
  3. LASIX [Concomitant]
     Active Substance: FUROSEMIDE
  4. CARDIZEM [Concomitant]
     Active Substance: DILTIAZEM HYDROCHLORIDE
  5. ENALAPRIL [Concomitant]
     Active Substance: ENALAPRIL
  6. ASACOL [Concomitant]
     Active Substance: MESALAMINE

REACTIONS (16)
  - Back pain [None]
  - Renal failure acute [None]
  - Tubulointerstitial nephritis [None]
  - Vomiting [None]
  - Anaemia [None]
  - Hypovolaemia [None]
  - Metabolic acidosis [None]
  - Hyperparathyroidism secondary [None]
  - Sleep apnoea syndrome [None]
  - Renal failure [None]
  - Dehydration [None]
  - Uterine leiomyoma [None]
  - Fatigue [None]
  - Renal failure chronic [None]
  - Nausea [None]
  - Malaise [None]

NARRATIVE: CASE EVENT DATE: 20040225
